FAERS Safety Report 10405205 (Version 2)
Quarter: 2015Q3

REPORT INFORMATION
  Report Type: Report from Study
  Country: AU (occurrence: AU)
  Receive Date: 20140825
  Receipt Date: 20150706
  Transmission Date: 20151125
  Serious: Yes (Hospitalization)
  Sender: FDA-Public Use
  Company Number: PHHY2014AU099976

PATIENT
  Sex: Female

DRUGS (1)
  1. CLOZARIL [Suspect]
     Active Substance: CLOZAPINE
     Indication: SCHIZOPHRENIA
     Dosage: 225 OT, UNK
     Route: 048
     Dates: start: 19980611

REACTIONS (3)
  - Pyrexia [Unknown]
  - Urinary tract infection [Unknown]
  - Chills [Unknown]
